FAERS Safety Report 6713344-5 (Version None)
Quarter: 2010Q2

REPORT INFORMATION
  Report Type: 
  Country: None (occurrence: None)
  Receive Date: 20100506
  Receipt Date: 20100419
  Transmission Date: 20101027
  Serious: Yes (Death)
  Sender: FDA-Public Use
  Company Number: US-ROCHE-694067

PATIENT
  Sex: Female
  Weight: 73.5 kg

DRUGS (1)
  1. CAPECITABINE [Suspect]
     Route: 048
     Dates: start: 20091201, end: 20100219

REACTIONS (1)
  - INTESTINAL OBSTRUCTION [None]
